FAERS Safety Report 17462630 (Version 4)
Quarter: 2020Q1

REPORT INFORMATION
  Report Type: Report from Study
  Country: US (occurrence: US)
  Receive Date: 20200226
  Receipt Date: 20200312
  Transmission Date: 20200409
  Serious: No
  Sender: FDA-Public Use
  Company Number: NVSC2020US054734

PATIENT
  Sex: Male

DRUGS (3)
  1. ENTRESTO [Suspect]
     Active Substance: SACUBITRIL\VALSARTAN
     Indication: CARDIAC FAILURE
     Dosage: 1 DF (SACUBITRIL 49MG/VALSARTAN 51MG), BID
     Route: 048
     Dates: start: 2016
  2. ENTRESTO [Suspect]
     Active Substance: SACUBITRIL\VALSARTAN
     Dosage: 1 DF (24MG SACUBITRIL /26MGVALSARTAN), BID
     Route: 048
     Dates: start: 202002
  3. ENTRESTO [Suspect]
     Active Substance: SACUBITRIL\VALSARTAN
     Dosage: 1 DF (24MG SACUBITRIL /26MGVALSARTAN), BID
     Route: 048
     Dates: start: 2018

REACTIONS (5)
  - Weight decreased [Not Recovered/Not Resolved]
  - Dysphagia [Not Recovered/Not Resolved]
  - Hypoacusis [Not Recovered/Not Resolved]
  - Cough [Unknown]
  - Mastication disorder [Not Recovered/Not Resolved]

NARRATIVE: CASE EVENT DATE: 2016
